FAERS Safety Report 8490420-0 (Version None)
Quarter: 2012Q3

REPORT INFORMATION
  Report Type: 
  Country: None (occurrence: None)
  Receive Date: 20120705
  Receipt Date: 20120625
  Transmission Date: 20120928
  Serious: Yes (Hospitalization, Other)
  Sender: FDA-Public Use
  Company Number: JP-CELGENEUS-087-50794-12063664

PATIENT
  Sex: Male
  Weight: 49 kg

DRUGS (6)
  1. LENDORMIN [Concomitant]
     Route: 065
  2. VALGANCICLOVIR [Concomitant]
     Route: 065
     Dates: start: 20120514, end: 20120524
  3. MAGMITT [Concomitant]
     Route: 065
  4. VALTREX [Concomitant]
     Route: 065
     Dates: start: 20120501, end: 20120507
  5. ARASENA-A [Concomitant]
     Route: 065
     Dates: start: 20120501, end: 20120510
  6. VIDAZA [Suspect]
     Indication: MYELODYSPLASTIC SYNDROME
     Dosage: 75 MILLIGRAM/SQ. METER
     Route: 041
     Dates: start: 20120416, end: 20120422

REACTIONS (2)
  - ORAL HERPES [None]
  - PNEUMONIA CYTOMEGALOVIRAL [None]
